FAERS Safety Report 8210285-1 (Version None)
Quarter: 2012Q1

REPORT INFORMATION
  Report Type: 
  Country: None (occurrence: None)
  Receive Date: 20120314
  Receipt Date: 20110315
  Transmission Date: 20120608
  Serious: No
  Sender: FDA-Public Use
  Company Number: US-ASTRAZENECA-2010SE11300

PATIENT
  Age: 50 Year
  Sex: Female

DRUGS (4)
  1. TOPROL-XL [Suspect]
     Route: 048
  2. TOPROL-XL [Suspect]
     Route: 048
  3. TOPROL-XL [Suspect]
     Route: 048
  4. XANAX [Concomitant]

REACTIONS (9)
  - HEART RATE INCREASED [None]
  - INSOMNIA [None]
  - CHEST PAIN [None]
  - HEADACHE [None]
  - SKIN BURNING SENSATION [None]
  - WEIGHT INCREASED [None]
  - WEIGHT DECREASED [None]
  - BLOOD PRESSURE INCREASED [None]
  - HYPOAESTHESIA [None]
